FAERS Safety Report 4279611-2 (Version None)
Quarter: 2004Q1

REPORT INFORMATION
  Report Type: 
  Country: None (occurrence: None)
  Receive Date: 20040123
  Receipt Date: 20040112
  Transmission Date: 20041129
  Serious: Yes (Other)
  Sender: FDA-Public Use
  Company Number: 2004002062

PATIENT
  Age: 54 Year
  Sex: Male
  Weight: 88.4514 kg

DRUGS (3)
  1. PROCARDIA XL [Suspect]
     Indication: HYPERTENSION
     Dosage: 30 MG, DAILY, ORAL
     Route: 048
  2. DOXEPIN [Suspect]
     Indication: SLEEP DISORDER
  3. NIFEDIPINE [Suspect]
     Indication: ILL-DEFINED DISORDER

REACTIONS (10)
  - ANXIETY [None]
  - BLOOD PRESSURE INCREASED [None]
  - DRUG INEFFECTIVE [None]
  - HEADACHE [None]
  - MIDDLE INSOMNIA [None]
  - MYOCARDIAL INFARCTION [None]
  - PHARMACEUTICAL PRODUCT COMPLAINT [None]
  - PRURITUS [None]
  - SLEEP DISORDER [None]
  - STRESS SYMPTOMS [None]
